FAERS Safety Report 8543110-X (Version None)
Quarter: 2012Q3

REPORT INFORMATION
  Report Type: 
  Country: None (occurrence: None)
  Receive Date: 20120727
  Receipt Date: 20111115
  Transmission Date: 20120928
  Serious: No
  Sender: FDA-Public Use
  Company Number: US-MYLANLABS-2011S1023585

PATIENT
  Sex: Female

DRUGS (2)
  1. LEVOTHYROXINE SODIUM [Suspect]
     Indication: HYPOTHYROIDISM
     Dosage: TAKE 1 TABLET EVERY DAY FOR 3 DAYS
     Route: 048
     Dates: start: 20080101, end: 20111102
  2. LEVOTHYROXINE SODIUM [Suspect]
     Dosage: TAKE 1 TABLET EVERY FOURTH DAY
     Route: 048
     Dates: start: 20080101, end: 20111102

REACTIONS (1)
  - NASAL ULCER [None]
